FAERS Safety Report 5967659-9 (Version None)
Quarter: 2008Q4

REPORT INFORMATION
  Report Type: 
  Country: None (occurrence: None)
  Receive Date: 20081126
  Receipt Date: 20081117
  Transmission Date: 20090506
  Serious: Yes (Hospitalization, Other)
  Sender: FDA-Public Use
  Company Number: PHHY2008AR28661

PATIENT

DRUGS (3)
  1. DIOVAN HCT [Suspect]
     Indication: HYPERTENSION
     Dosage: UNK
     Dates: end: 20081027
  2. SINTROM [Concomitant]
  3. ACETYLSALICYLIC ACID SRT [Concomitant]

REACTIONS (6)
  - ARTERIAL BYPASS OPERATION [None]
  - CATHETERISATION VENOUS [None]
  - FEMORAL ARTERY OCCLUSION [None]
  - LEG AMPUTATION [None]
  - PARAESTHESIA [None]
  - SPONTANEOUS HAEMATOMA [None]
